FAERS Safety Report 7865506-1 (Version None)
Quarter: 2011Q4

REPORT INFORMATION
  Report Type: 
  Country: None (occurrence: None)
  Receive Date: 20111028
  Receipt Date: 20110110
  Transmission Date: 20120403
  Serious: No
  Sender: FDA-Public Use
  Company Number: US-GLAXOSMITHKLINE-A0904944A

PATIENT
  Age: 75 Year
  Sex: Female

DRUGS (4)
  1. ADVAIR DISKUS 100/50 [Suspect]
     Indication: WHEEZING
     Dosage: 1PUFF TWICE PER DAY
     Route: 055
     Dates: start: 20060101
  2. CHOLESTEROL REDUCING AGENT [Concomitant]
  3. BLOOD PRESSURE MEDICATION [Concomitant]
     Indication: HYPERTENSION
  4. THYROID MEDICATION [Concomitant]

REACTIONS (2)
  - APHONIA [None]
  - DYSPHONIA [None]
